FAERS Safety Report 23182875 (Version 1)
Quarter: 2023Q4

REPORT INFORMATION
  Report Type: Spontaneous
  Country: US (occurrence: US)
  Receive Date: 20231114
  Receipt Date: 20231114
  Transmission Date: 20240109
  Serious: No
  Sender: FDA-Public Use
  Company Number: US-SA-SAC20231106000449

PATIENT
  Age: 24 Year
  Sex: Male
  Weight: 99.773 kg

DRUGS (1)
  1. DUPIXENT [Suspect]
     Active Substance: DUPILUMAB
     Indication: Dermatitis contact
     Dosage: 300 MG, QOW
     Route: 058

REACTIONS (9)
  - Pruritus [Recovering/Resolving]
  - Skin exfoliation [Recovering/Resolving]
  - Skin haemorrhage [Recovering/Resolving]
  - Sleep disorder [Recovering/Resolving]
  - Skin weeping [Recovering/Resolving]
  - Dry skin [Recovering/Resolving]
  - Dermatitis contact [Recovering/Resolving]
  - Condition aggravated [Recovering/Resolving]
  - Product use in unapproved indication [Unknown]

NARRATIVE: CASE EVENT DATE: 20230901
